FAERS Safety Report 17235943 (Version 1)
Quarter: 2020Q1

REPORT INFORMATION
  Report Type: Spontaneous
  Country: US (occurrence: US)
  Receive Date: 20200106
  Receipt Date: 20200106
  Transmission Date: 20200409
  Serious: No
  Sender: FDA-Public Use
  Company Number: US-DRREDDYS-USA/USA/19/0117916

PATIENT
  Sex: Male

DRUGS (4)
  1. ZENATANE [Suspect]
     Active Substance: ISOTRETINOIN
     Indication: PRODUCT USED FOR UNKNOWN INDICATION
     Dosage: RMA ISSUE DATE WAS NOTED AS 28 AUGUST 2019
     Route: 048
  2. ZENATANE [Suspect]
     Active Substance: ISOTRETINOIN
     Dosage: RMA ISSUE DATE WAS NOTED AS 23 NOVEMBER 2019
     Route: 048
  3. ZENATANE [Suspect]
     Active Substance: ISOTRETINOIN
     Dosage: RMA ISSUE DATE WAS NOTED AS 28 SEPTEMBER 2019
     Route: 048
  4. ZENATANE [Suspect]
     Active Substance: ISOTRETINOIN
     Dosage: RMA ISSUE DATE WAS NOTED AS 26 OCTOBER 2019
     Route: 048

REACTIONS (1)
  - Hepatic enzyme increased [Unknown]
